FAERS Safety Report 9571107 (Version 1)
Quarter: 2013Q4

REPORT INFORMATION
  Report Type: Spontaneous
  Country: FR (occurrence: FR)
  Receive Date: 20131001
  Receipt Date: 20131001
  Transmission Date: 20140711
  Serious: Yes (Hospitalization)
  Sender: FDA-Public Use
  Company Number: PHHY2013FR107550

PATIENT
  Age: 84 Year
  Sex: Male

DRUGS (11)
  1. ACLASTA [Suspect]
     Dosage: 5 MG, 1DF, 1 IN 1 DAYS
     Route: 042
     Dates: start: 20110317
  2. TRAMADOL [Suspect]
     Indication: BACK PAIN
     Dosage: UNK UKN, UNK
     Route: 048
     Dates: start: 20110314, end: 20110315
  3. ACTISKENAN [Suspect]
     Indication: BACK PAIN
     Dosage: 1 DF, (1 DF, 4 IN 1 DAY)
     Route: 048
     Dates: start: 20110315, end: 20110320
  4. CALSYN [Suspect]
     Indication: BACK PAIN
     Dosage: 1 DF, (1DF, 1 IN 1 DAYS1DF, 1 IN 1 DAYS)
     Route: 058
     Dates: start: 20110315, end: 20110320
  5. SKENAN [Suspect]
     Dosage: UNK UKN, UNK
     Route: 048
     Dates: start: 20110315, end: 20110319
  6. PREDNISONE [Concomitant]
     Indication: INTERSTITIAL LUNG DISEASE
     Dosage: UNK UKN, UNK
     Route: 048
     Dates: start: 20101230, end: 20110314
  7. PROFENID [Concomitant]
     Indication: BACK PAIN
     Dosage: 3 DF, UNK
     Route: 048
     Dates: start: 20110314, end: 20110319
  8. SINTROM [Concomitant]
     Dosage: 0.25 DF, 1 IN 1 DAY
     Route: 048
  9. TAHOR [Concomitant]
     Dosage: 1DF, 1 IN 1 DAY
     Route: 048
  10. NORMACOL [Concomitant]
  11. OLMETEC [Concomitant]
     Dosage: 20 MG, UNK
     Route: 048

REACTIONS (2)
  - Subileus [Recovered/Resolved]
  - Nausea [Recovered/Resolved]
